FAERS Safety Report 10182804 (Version 1)
Quarter: 2014Q2

REPORT INFORMATION
  Report Type: Spontaneous
  Country: GB (occurrence: GB)
  Receive Date: 20140520
  Receipt Date: 20140520
  Transmission Date: 20141212
  Serious: Yes (Life-Threatening, Hospitalization)
  Sender: FDA-Public Use
  Company Number: GB-WATSON-2014-09992

PATIENT
  Age: 68 Year
  Sex: Female

DRUGS (4)
  1. RISPERIDONE (UNKNOWN) [Suspect]
     Indication: SCHIZOPHRENIA, PARANOID TYPE
     Dosage: 2 MG, QHS
     Route: 048
     Dates: start: 20140407
  2. LORAZEPAM [Concomitant]
     Indication: AGITATION
     Dosage: 1 MG, PRN
     Route: 048
     Dates: start: 20140406
  3. PROMETHAZINE [Concomitant]
     Indication: AGITATION
     Dosage: 25 MG, PRN; ORAL/INTRAMUSCULAR
     Route: 048
     Dates: start: 20140408, end: 20140409
  4. OLANZAPINE [Concomitant]
     Indication: AGITATION
     Dosage: 2.5 MG, PRN; ORAL/INTRAMUSCULAR
     Route: 048
     Dates: start: 20140406, end: 20140406

REACTIONS (1)
  - Pulmonary embolism [Not Recovered/Not Resolved]
